FAERS Safety Report 24122157 (Version 3)
Quarter: 2024Q3

REPORT INFORMATION
  Report Type: Report from Study
  Country: US (occurrence: US)
  Receive Date: 20240722
  Receipt Date: 20240903
  Transmission Date: 20241016
  Serious: Yes (Other)
  Sender: JOHNSON AND JOHNSON
  Company Number: US-JNJFOC-20240738105

PATIENT
  Age: 37 Year
  Sex: Female

DRUGS (1)
  1. SPRAVATO [Suspect]
     Active Substance: ESKETAMINE
     Indication: Depression
     Dosage: ^56 MG, 2 TOTAL DOSES^
     Dates: start: 20240709, end: 20240711

REACTIONS (14)
  - Mental impairment [Unknown]
  - Emotional disorder [Unknown]
  - Memory impairment [Unknown]
  - Nausea [Unknown]
  - Dizziness [Unknown]
  - Fatigue [Unknown]
  - Irritability [Unknown]
  - Nervousness [Unknown]
  - Feeling abnormal [Unknown]
  - Premenstrual dysphoric disorder [Unknown]
  - Obsessive-compulsive disorder [Unknown]
  - Mania [Unknown]
  - Depression [Unknown]
  - Anxiety [Recovered/Resolved]

NARRATIVE: CASE EVENT DATE: 20240101
